FAERS Safety Report 18566019 (Version 1)
Quarter: 2020Q4

REPORT INFORMATION
  Report Type: Report from Study
  Country: BR (occurrence: BR)
  Receive Date: 20201201
  Receipt Date: 20201201
  Transmission Date: 20210114
  Serious: Yes (Other)
  Sender: FDA-Public Use
  Company Number: BR-UCBSA-2020048040

PATIENT
  Age: 57 Year
  Sex: Female
  Weight: 70 kg

DRUGS (1)
  1. CERTOLIZUMAB PEGOL RA [Suspect]
     Active Substance: CERTOLIZUMAB PEGOL
     Indication: RHEUMATOID ARTHRITIS
     Dosage: UNK UNK, MONTHLY (QM)
     Route: 058
     Dates: start: 2018

REACTIONS (3)
  - COVID-19 [Recovered/Resolved]
  - Asthenia [Recovered/Resolved]
  - Stress [Not Recovered/Not Resolved]

NARRATIVE: CASE EVENT DATE: 201810
